FAERS Safety Report 16424410 (Version 1)
Quarter: 2019Q2

REPORT INFORMATION
  Report Type: Spontaneous
  Country: DE (occurrence: DE)
  Receive Date: 20190613
  Receipt Date: 20190613
  Transmission Date: 20190711
  Serious: Yes (Hospitalization, Other)
  Sender: FDA-Public Use
  Company Number: DE-SA-2019SA154323

PATIENT
  Age: 37 Year
  Sex: Male
  Weight: 60 kg

DRUGS (1)
  1. LEMTRADA [Suspect]
     Active Substance: ALEMTUZUMAB
     Dosage: 12 MG
     Route: 041
     Dates: start: 201508, end: 201608

REACTIONS (3)
  - Cholecystitis acute [Unknown]
  - Autoimmune haemolytic anaemia [Unknown]
  - Vitiligo [Unknown]

NARRATIVE: CASE EVENT DATE: 201608
